FAERS Safety Report 14878374 (Version 1)
Quarter: 2018Q2

REPORT INFORMATION
  Report Type: Spontaneous
  Country: BR (occurrence: BR)
  Receive Date: 20180511
  Receipt Date: 20180511
  Transmission Date: 20180711
  Serious: Yes (Life-Threatening, Other)
  Sender: FDA-Public Use
  Company Number: BR-ASTRAZENECA-2018SE61460

PATIENT
  Age: 35 Year
  Sex: Male

DRUGS (8)
  1. OMEPRAZOLE. [Suspect]
     Active Substance: OMEPRAZOLE
     Dosage: 40.0MG UNKNOWN
     Route: 048
     Dates: start: 201710
  2. PROMETHAZINE [Concomitant]
     Active Substance: PROMETHAZINE\PROMETHAZINE HYDROCHLORIDE
     Dates: start: 201710
  3. CLONAZEPAM. [Concomitant]
     Active Substance: CLONAZEPAM
     Dosage: 60 DROPS
     Dates: start: 201710
  4. FLUOXETINE [Concomitant]
     Active Substance: FLUOXETINE HYDROCHLORIDE
     Dates: start: 201710
  5. BUCLIZINE [Concomitant]
     Active Substance: BUCLIZINE
     Dates: start: 201710
  6. NORTRIPTYLINE [Concomitant]
     Active Substance: NORTRIPTYLINE
     Dates: start: 201710
  7. CHLORPROMAZINE. [Concomitant]
     Active Substance: CHLORPROMAZINE
     Dates: start: 201710
  8. AMITRIPTYLINE [Concomitant]
     Active Substance: AMITRIPTYLINE
     Dates: start: 201710

REACTIONS (13)
  - Mood altered [Unknown]
  - Self esteem decreased [Unknown]
  - Depressed mood [Unknown]
  - Anhedonia [Unknown]
  - Apathy [Unknown]
  - Speech disorder [Unknown]
  - Disorientation [Unknown]
  - Fear [Unknown]
  - Anxiety [Unknown]
  - Suicide attempt [Unknown]
  - Suicidal ideation [Unknown]
  - Weight decreased [Unknown]
  - Anticipatory anxiety [Unknown]

NARRATIVE: CASE EVENT DATE: 2018
